FAERS Safety Report 5045218-2 (Version None)
Quarter: 2006Q3

REPORT INFORMATION
  Report Type: 
  Country: None (occurrence: None)
  Receive Date: 20060707
  Receipt Date: 20060628
  Transmission Date: 20061208
  Serious: Yes (Hospitalization)
  Sender: FDA-Public Use
  Company Number: TR-GLAXOSMITHKLINE-B0429507A

PATIENT
  Age: 70 Year
  Sex: Male
  Weight: 90 kg

DRUGS (1)
  1. DUTASTERIDE [Suspect]
     Indication: BENIGN PROSTATIC HYPERPLASIA
     Dosage: .5MG PER DAY
     Route: 048
     Dates: start: 20041001

REACTIONS (2)
  - CHEST PAIN [None]
  - CORONARY ARTERY DISEASE [None]
